FAERS Safety Report 5103189-4 (Version None)
Quarter: 2006Q3

REPORT INFORMATION
  Report Type: 
  Country: None (occurrence: None)
  Receive Date: 20060912
  Receipt Date: 20060912
  Transmission Date: 20061208
  Serious: No
  Sender: FDA-Public Use
  Company Number: None

PATIENT
  Age: 11 Year
  Sex: Male

DRUGS (2)
  1. TRILEPTAL [Suspect]
     Indication: CYCLOTHYMIC DISORDER
     Dosage: 2 1/2 MG X 2 DAY 5MG X 5 DAYS THEN 7 1/2MG X 5 DAYS -}1.0ML
     Route: 065
     Dates: start: 20060818, end: 20060906
  2. FLUOXETINE [Concomitant]

REACTIONS (1)
  - CONTUSION [None]
